FAERS Safety Report 15280423 (Version 1)
Quarter: 2018Q4

REPORT INFORMATION
  Report Type: Spontaneous
  Country: MX (occurrence: MX)
  Receive Date: 20180815
  Receipt Date: 20180815
  Transmission Date: 20190204
  Serious: Yes (Hospitalization)
  Sender: FDA-Public Use
  Company Number: MX-GLAXOSMITHKLINE-MX2018GSK142874

PATIENT
  Sex: Female

DRUGS (1)
  1. INDOXYL GEL (BENZOYL PEROXIDE CLINDAMYCIN) [Suspect]
     Active Substance: BENZOYL PEROXIDE\CLINDAMYCIN PHOSPHATE
     Indication: PRODUCT USED FOR UNKNOWN INDICATION
     Dosage: UNK

REACTIONS (1)
  - Inflammation [Unknown]
